FAERS Safety Report 9066132 (Version 1)
Quarter: 2013Q1

REPORT INFORMATION
  Report Type: Report from Study
  Country: US (occurrence: US)
  Receive Date: 20130131
  Receipt Date: 20130131
  Transmission Date: 20140127
  Serious: No
  Sender: FDA-Public Use
  Company Number: US-ABBOTT-12P-163-1012979-00

PATIENT
  Sex: Female

DRUGS (2)
  1. HUMIRA [Suspect]
     Indication: CROHN^S DISEASE
     Route: 058
     Dates: start: 201110
  2. HUMIRA [Suspect]
     Route: 058

REACTIONS (5)
  - Migraine [Unknown]
  - Bronchitis [Unknown]
  - Dyspnoea [Unknown]
  - Cough [Unknown]
  - Drug dose omission [Unknown]
